FAERS Safety Report 6032124-X (Version None)
Quarter: 2009Q1

REPORT INFORMATION
  Report Type: 
  Country: None (occurrence: None)
  Receive Date: 20090108
  Receipt Date: 20090107
  Transmission Date: 20090719
  Serious: Yes (Congenital Anomaly)
  Sender: FDA-Public Use
  Company Number: TR-GILEAD-2009-0019731

PATIENT

DRUGS (1)
  1. HEPSERA [Suspect]

REACTIONS (1)
  - CONGENITAL ANOMALY [None]
